FAERS Safety Report 8846770 (Version 4)
Quarter: 2012Q4

REPORT INFORMATION
  Report Type: 
  Country: US (occurrence: US)
  Receive Date: 20121018
  Receipt Date: 20121212
  Transmission Date: 20130627
  Serious: No
  Sender: FDA-Public Use
  Company Number: US-PFIZER INC-2012258914

PATIENT
  Sex: Male

DRUGS (1)
  1. CELEBREX [Suspect]
     Indication: RA
     Dosage: 1 pill, a day

REACTIONS (5)
  - Swelling face [Not Recovered/Not Resolved]
  - Hyperhidrosis [Unknown]
  - Skin odour abnormal [Recovered/Resolved]
  - Localised infection [Unknown]
  - Hypersensitivity [Unknown]
